FAERS Safety Report 18849796 (Version 2)
Quarter: 2021Q1

REPORT INFORMATION
  Report Type: Report from Study
  Country: DE (occurrence: DE)
  Receive Date: 20210204
  Receipt Date: 20210222
  Transmission Date: 20210420
  Serious: Yes (Death, Hospitalization, Other)
  Sender: FDA-Public Use
  Company Number: DE-CELGENEUS-DEU-20210104024

PATIENT
  Age: 67 Year
  Sex: Male
  Weight: 76.1 kg

DRUGS (12)
  1. DEXAMETHASONE. [Suspect]
     Active Substance: DEXAMETHASONE
     Indication: HAEMATOPOIETIC STEM CELL MOBILISATION
     Route: 048
     Dates: start: 20171116, end: 20200416
  2. LENALIDOMIDE [Suspect]
     Active Substance: LENALIDOMIDE
     Indication: PLASMA CELL MYELOMA
     Dosage: 5 MILLIGRAM
     Route: 048
     Dates: start: 20170801, end: 201711
  3. ELOTUZUMAB. [Suspect]
     Active Substance: ELOTUZUMAB
     Indication: PLASMA CELL MYELOMA
     Route: 041
     Dates: start: 20170801, end: 201711
  4. ELOTUZUMAB. [Suspect]
     Active Substance: ELOTUZUMAB
     Route: 041
     Dates: end: 202005
  5. ADRIAMYCIN [Concomitant]
     Active Substance: DOXORUBICIN HYDROCHLORIDE
     Indication: HAEMATOPOIETIC STEM CELL MOBILISATION
     Route: 065
     Dates: start: 20171116
  6. CYCLOPHOSPHAMIDE. [Concomitant]
     Active Substance: CYCLOPHOSPHAMIDE
     Indication: HAEMATOPOIETIC STEM CELL MOBILISATION
     Route: 065
     Dates: start: 20171116
  7. LENALIDOMIDE [Suspect]
     Active Substance: LENALIDOMIDE
     Dosage: 5 MILLIGRAM
     Route: 048
     Dates: start: 201803, end: 20200511
  8. DEXAMETHASONE. [Suspect]
     Active Substance: DEXAMETHASONE
     Indication: PLASMA CELL MYELOMA
     Route: 048
     Dates: start: 20170801, end: 201711
  9. BORTEZOMIB. [Suspect]
     Active Substance: BORTEZOMIB
     Indication: PLASMA CELL MYELOMA
     Route: 058
     Dates: start: 20170801, end: 20171012
  10. BORTEZOMIB. [Suspect]
     Active Substance: BORTEZOMIB
     Route: 058
     Dates: start: 2017, end: 201711
  11. ELOTUZUMAB. [Suspect]
     Active Substance: ELOTUZUMAB
     Route: 041
     Dates: start: 201803, end: 20200416
  12. MELPHALAN. [Concomitant]
     Active Substance: MELPHALAN
     Indication: PRODUCT USED FOR UNKNOWN INDICATION
     Dosage: HIGH DOSE
     Route: 065
     Dates: start: 20171205

REACTIONS (1)
  - B precursor type acute leukaemia [Fatal]

NARRATIVE: CASE EVENT DATE: 20210115
